FAERS Safety Report 21475063 (Version 3)
Quarter: 2022Q4

REPORT INFORMATION
  Report Type: Spontaneous
  Country: US (occurrence: US)
  Receive Date: 20221019
  Receipt Date: 20221208
  Transmission Date: 20230113
  Serious: No
  Sender: FDA-Public Use
  Company Number: US-GSK-US2022AMR147401

PATIENT
  Sex: Female

DRUGS (1)
  1. ADVAIR HFA [Suspect]
     Active Substance: FLUTICASONE PROPIONATE\SALMETEROL XINAFOATE
     Indication: Product used for unknown indication
     Dosage: UNK 1 (OR SOMETIMES 2 PUFFS)

REACTIONS (5)
  - Wrong technique in device usage process [Unknown]
  - Drug ineffective [Unknown]
  - Underdose [Unknown]
  - Product storage error [Unknown]
  - Product complaint [Unknown]
